FAERS Safety Report 9511385 (Version 1)
Quarter: 2013Q1

REPORT INFORMATION
  Report Type: Spontaneous
  Country: US (occurrence: None)
  Receive Date: 20130305
  Receipt Date: 20130305
  Transmission Date: 20140127
  Serious: Yes (Other)
  Sender: FDA-Public Use
  Company Number: 163-21880-12103314

PATIENT
  Age: 82 Year
  Sex: Female
  Weight: 87.54 kg

DRUGS (14)
  1. REVLIMID [Suspect]
     Indication: PLASMA CELL MYELOMA
     Dosage: 25 MG, 21 IN 28 D, PO
     Route: 048
     Dates: start: 20120818
  2. REVLIMID [Suspect]
     Indication: MYELODYSPLASTIC SYNDROME
     Dosage: 25 MG, 21 IN 28 D, PO
     Route: 048
     Dates: start: 20120818
  3. AMBIEN (ZOLPIDEM TARTRATE) [Concomitant]
  4. ADULT LOW DOSE ASA (ACETYLSALICYLIC ACID) [Concomitant]
  5. BACTRIM (BACTRIM) [Concomitant]
  6. CELEXA (CITALOPRAM HYDROBROMIDE) [Concomitant]
  7. DECADRON (DEXAMETHASONE) [Concomitant]
  8. GABAPENTIN (GABAPENTIN) [Concomitant]
  9. GLIPIZIDE (GLIPIZIDE) [Concomitant]
  10. LIPITOR (ATORVASTATIN) [Concomitant]
  11. LORAZEPAM (LORAZEPAM) [Concomitant]
  12. PROCHLORPERAZINE (PROCHLORPERAZINE) [Concomitant]
  13. SYNTHROID (LEVOTHYROXINE SODIUM) [Concomitant]
  14. TYLENOL (PARACETAMOL) [Concomitant]

REACTIONS (2)
  - Fatigue [None]
  - Haemoglobin increased [None]
